FAERS Safety Report 5299211-5 (Version None)
Quarter: 2007Q2

REPORT INFORMATION
  Report Type: 
  Country: None (occurrence: None)
  Receive Date: 20070417
  Receipt Date: 20070406
  Transmission Date: 20071010
  Serious: Yes (Other)
  Sender: FDA-Public Use
  Company Number: US-JNJFOC-20070403243

PATIENT

DRUGS (1)
  1. NATRECOR [Suspect]
     Indication: CARDIAC FAILURE

REACTIONS (1)
  - VENTRICULAR TACHYCARDIA [None]
